FAERS Safety Report 11796052 (Version 1)
Quarter: 2015Q4

REPORT INFORMATION
  Report Type: Spontaneous
  Country: US (occurrence: None)
  Receive Date: 20151202
  Receipt Date: 20151202
  Transmission Date: 20160305
  Serious: Yes (Death)
  Sender: FDA-Public Use
  Company Number: None

PATIENT
  Age: 69 Year
  Sex: Female
  Weight: 99.3 kg

DRUGS (4)
  1. 5-FLUOROURACIL (5-FU) [Suspect]
     Active Substance: FLUOROURACIL
     Dates: end: 20151122
  2. LEUCOVORIN CALCIUM. [Suspect]
     Active Substance: LEUCOVORIN CALCIUM
     Dates: end: 20151120
  3. ELOXATIN [Suspect]
     Active Substance: OXALIPLATIN
     Dates: end: 20151120
  4. CAMPTOSAR [Suspect]
     Active Substance: IRINOTECAN HYDROCHLORIDE
     Dates: end: 20151120

REACTIONS (12)
  - Pyrexia [None]
  - Back pain [None]
  - Peripheral swelling [None]
  - Bradycardia [None]
  - Hyperglycaemia [None]
  - Hyperkalaemia [None]
  - Malaise [None]
  - Tachycardia [None]
  - Anaemia [None]
  - Cardiac arrest [None]
  - Acute kidney injury [None]
  - Hypertension [None]

NARRATIVE: CASE EVENT DATE: 20151127
